FAERS Safety Report 6324455-0 (Version None)
Quarter: 2009Q3

REPORT INFORMATION
  Report Type: 
  Country: None (occurrence: None)
  Receive Date: 20090824
  Receipt Date: 20090428
  Transmission Date: 20100115
  Serious: No
  Sender: FDA-Public Use
  Company Number: US-ABBOTT-09P-163-0570703-00

PATIENT
  Sex: Male
  Weight: 102.15 kg

DRUGS (12)
  1. NIASPAN [Suspect]
     Indication: HIGH DENSITY LIPOPROTEIN DECREASED
     Route: 048
     Dates: start: 20060101, end: 20081201
  2. NIASPAN [Suspect]
     Route: 048
     Dates: start: 20090101, end: 20090301
  3. NIASPAN [Suspect]
     Route: 048
     Dates: start: 20090301
  4. ASPRIN COATED [Concomitant]
     Indication: PROPHYLAXIS
     Route: 048
  5. ASPRIN COATED [Concomitant]
     Indication: ATRIAL FIBRILLATION
  6. TRICOR [Concomitant]
     Indication: BLOOD TRIGLYCERIDES INCREASED
     Route: 048
  7. ALTACE [Concomitant]
     Indication: CARDIAC DISORDER
     Route: 048
  8. CENTRUM SILVER [Concomitant]
     Indication: SUPPLEMENTATION THERAPY
     Route: 048
  9. FISH OIL [Concomitant]
     Indication: SUPPLEMENTATION THERAPY
     Route: 048
  10. SYNTHROID [Concomitant]
     Indication: HYPOTHYROIDISM
     Route: 048
     Dates: start: 19800101
  11. CELEBREX [Concomitant]
     Indication: INTERVERTEBRAL DISC PROTRUSION
     Route: 048
  12. FLOMAX [Concomitant]
     Indication: PROSTATOMEGALY
     Route: 048

REACTIONS (3)
  - ATRIAL FIBRILLATION [None]
  - FLUSHING [None]
  - HEADACHE [None]
